FAERS Safety Report 16253189 (Version 4)
Quarter: 2019Q2

REPORT INFORMATION
  Report Type: Spontaneous
  Country: CA (occurrence: CA)
  Receive Date: 20190429
  Receipt Date: 20190625
  Transmission Date: 20190711
  Serious: Yes (Hospitalization, Other)
  Sender: FDA-Public Use
  Company Number: CA-CELLTRION INC.-2019CA019751

PATIENT

DRUGS (17)
  1. INFLECTRA [Suspect]
     Active Substance: INFLIXIMAB-DYYB
     Dosage: 485 MG Q 6 WEEKS THEN Q 8 WEEKS
     Route: 042
     Dates: start: 20190121, end: 20190121
  2. INFLECTRA [Suspect]
     Active Substance: INFLIXIMAB-DYYB
     Dosage: 10 MG/KG, EVERY 6 WEEKS
     Route: 042
     Dates: start: 20190531
  3. PENTASA [Concomitant]
     Active Substance: MESALAMINE
     Dosage: 500 MG 4 TABLETS, 2X/DAY
  4. INFLECTRA [Suspect]
     Active Substance: INFLIXIMAB-DYYB
     Dosage: 485 MG, /Q 6 WEEKS, THEN EVERY 8 WEEKS
     Route: 042
     Dates: start: 20190416
  5. SALOFALK [MESALAZINE] [Concomitant]
     Active Substance: MESALAMINE
     Indication: ENEMA ADMINISTRATION
     Dosage: 4 G, 1X/DAY AT BEDTIME ENEMA
  6. INFLECTRA [Suspect]
     Active Substance: INFLIXIMAB-DYYB
     Indication: COLITIS ULCERATIVE
     Dosage: 440 MG AT 0, 2, 6 WEEKS THEN Q 8 WEEKS
     Route: 042
     Dates: start: 20190108, end: 20190121
  7. INFLECTRA [Suspect]
     Active Substance: INFLIXIMAB-DYYB
     Dosage: 485 MG, /Q 6 WEEKS, THEN EVERY 8 WEEKS
     Route: 042
     Dates: start: 20190219
  8. PREDNISONE. [Concomitant]
     Active Substance: PREDNISONE
     Dosage: 10 MG, DAILY (TAPERING)
     Route: 048
  9. PREDNISONE. [Concomitant]
     Active Substance: PREDNISONE
     Dosage: 8 DF (5 MG TABLET), 1X/DAY FOR 1 MONTH
     Route: 048
  10. PREDNISONE. [Concomitant]
     Active Substance: PREDNISONE
     Dosage: 60 MG, DAILY (TAPERING)
     Route: 048
     Dates: start: 201810
  11. IMURAN [Concomitant]
     Active Substance: AZATHIOPRINE
     Indication: COLITIS ULCERATIVE
     Dosage: 200 MG, 1X/DAY
     Dates: start: 201904
  12. PREDNISONE. [Concomitant]
     Active Substance: PREDNISONE
     Dosage: 15 MG, DAILY (TAPERING)
     Route: 048
  13. CALCIUM, VITAMIN D NOS [Concomitant]
     Dosage: UNK
     Route: 048
  14. PREDNISONE. [Concomitant]
     Active Substance: PREDNISONE
     Indication: COLITIS ULCERATIVE
     Dosage: 25 MG, DAILY (TAPERING)
     Route: 048
  15. BUDESONIDE. [Concomitant]
     Active Substance: BUDESONIDE
     Indication: ENEMA ADMINISTRATION
     Dosage: 0.02 MG/ML, 1X/DAY AT BEDTIME
     Route: 054
  16. INFLECTRA [Suspect]
     Active Substance: INFLIXIMAB-DYYB
     Dosage: 485 MG Q 6 WEEKS THEN Q 8 WEEKS
     Route: 042
  17. FERROUS GLUCONATE [Concomitant]
     Active Substance: FERROUS GLUCONATE
     Dosage: 300 MG/35 MG IRON , 2X/DAY
     Route: 048

REACTIONS (4)
  - Underdose [Unknown]
  - Condition aggravated [Not Recovered/Not Resolved]
  - Therapeutic response decreased [Unknown]
  - Drug level below therapeutic [Unknown]

NARRATIVE: CASE EVENT DATE: 2019
